FAERS Safety Report 9330883 (Version 1)
Quarter: 2013Q2

REPORT INFORMATION
  Report Type: Spontaneous
  Country: US (occurrence: None)
  Receive Date: 20130531
  Receipt Date: 20130531
  Transmission Date: 20140414
  Serious: Yes (Other)
  Sender: FDA-Public Use
  Company Number: CA-ALSI-201300137

PATIENT
  Age: 6 Year
  Sex: Female

DRUGS (4)
  1. OXYGEN [Suspect]
  2. CEFUROXIME [Suspect]
  3. FLUTICASONE [Concomitant]
  4. SALBUTAMOL [Concomitant]

REACTIONS (3)
  - Cushing^s syndrome [None]
  - Drug ineffective [None]
  - Hypoxia [None]
